FAERS Safety Report 9736362 (Version 1)
Quarter: 2013Q4

REPORT INFORMATION
  Report Type: Spontaneous
  Country: JP (occurrence: JP)
  Receive Date: 20131206
  Receipt Date: 20131206
  Transmission Date: 20140711
  Serious: Yes (Other)
  Sender: FDA-Public Use
  Company Number: JP-ROCHE-1310452

PATIENT
  Sex: Male

DRUGS (2)
  1. CELLCEPT [Suspect]
     Indication: PROPHYLAXIS AGAINST TRANSPLANT REJECTION
     Dosage: FOR UNCERTAIN DOSAGE AND ABOUT TWO YEARS
     Route: 048
  2. MEDROL [Concomitant]
     Indication: PROPHYLAXIS AGAINST TRANSPLANT REJECTION
     Dosage: DOSAGE IS UNCERTAIN.
     Route: 048

REACTIONS (5)
  - Dystonia [Unknown]
  - Loss of consciousness [Unknown]
  - Gynaecomastia [Unknown]
  - Swelling face [Unknown]
  - Personality change [Unknown]
